FAERS Safety Report 7495421-7 (Version None)
Quarter: 2011Q2

REPORT INFORMATION
  Report Type: 
  Country: None (occurrence: None)
  Receive Date: 20110523
  Receipt Date: 20110331
  Transmission Date: 20111010
  Serious: No
  Sender: FDA-Public Use
  Company Number: US-TYCO HEALTHCARE/MALLINCKRODT-T201100688

PATIENT
  Age: 53 Year
  Sex: Female
  Weight: 56.689 kg

DRUGS (6)
  1. FENTANYL-100 [Suspect]
     Indication: PAIN
     Dosage: 100 UG Q72H
     Route: 062
     Dates: start: 20110325
  2. LORTAB [Concomitant]
     Dosage: Q4 HR
     Route: 048
  3. TRAMADOL HCL [Concomitant]
     Dosage: TID
     Route: 048
  4. SOMA [Concomitant]
     Route: 048
  5. LASIX [Concomitant]
     Route: 048
  6. ISORDIL [Concomitant]
     Route: 048

REACTIONS (1)
  - APPLICATION SITE RASH [None]
